FAERS Safety Report 12663495 (Version 2)
Quarter: 2016Q3

REPORT INFORMATION
  Report Type: Spontaneous
  Country: BR (occurrence: BR)
  Receive Date: 20160818
  Receipt Date: 20160921
  Transmission Date: 20161109
  Serious: Yes (Other)
  Sender: FDA-Public Use
  Company Number: BR-NOVOPROD-505569

PATIENT
  Age: 55 Year
  Sex: Female

DRUGS (4)
  1. GLICLAZIDE [Concomitant]
     Active Substance: GLICLAZIDE
     Indication: TYPE 1 DIABETES MELLITUS
  2. NOVOLIN N [Suspect]
     Active Substance: INSULIN HUMAN
     Indication: TYPE 1 DIABETES MELLITUS
     Dosage: 42 IU, QD (30U IN THE MORNING AND 12IU IN THE EVENING)
     Route: 065
     Dates: start: 20160704
  3. NOVOLIN N [Suspect]
     Active Substance: INSULIN HUMAN
     Dosage: 42 IU, QD (30U IN THE MORNING AND 12IU IN THE EVENING)
     Route: 065
  4. GALVUS [Concomitant]
     Active Substance: VILDAGLIPTIN
     Indication: TYPE 1 DIABETES MELLITUS

REACTIONS (2)
  - Hepatic pain [Not Recovered/Not Resolved]
  - Visual impairment [Not Recovered/Not Resolved]
